FAERS Safety Report 13778093 (Version 1)
Quarter: 2017Q3

REPORT INFORMATION
  Report Type: Report from Study
  Country: CA (occurrence: CA)
  Receive Date: 20170721
  Receipt Date: 20170721
  Transmission Date: 20171127
  Serious: Yes (Hospitalization)
  Sender: FDA-Public Use
  Company Number: CA-CELGENEUS-CAN-2015087194

PATIENT
  Age: 66 Year
  Sex: Female
  Weight: 50.7 kg

DRUGS (44)
  1. NORMAL SALINE [Concomitant]
     Active Substance: SODIUM CHLORIDE
     Dosage: 24 LITERS
     Route: 041
     Dates: start: 20150827, end: 20150827
  2. NORMAL SALINE [Concomitant]
     Active Substance: SODIUM CHLORIDE
     Dosage: 48 LITERS
     Route: 041
     Dates: start: 20150828, end: 20150828
  3. HYDROMORPHONE [Concomitant]
     Active Substance: HYDROMORPHONE
     Indication: PAIN
     Route: 048
     Dates: start: 20150722
  4. BENADRYL [Concomitant]
     Active Substance: DIPHENHYDRAMINE HYDROCHLORIDE
     Indication: PROPHYLAXIS
     Route: 041
     Dates: start: 20150827, end: 20150827
  5. LASIX [Concomitant]
     Active Substance: FUROSEMIDE
     Indication: GENERALISED OEDEMA
     Dosage: 20 MILLIGRAM
     Route: 048
     Dates: start: 20150901, end: 20150901
  6. LASIX [Concomitant]
     Active Substance: FUROSEMIDE
     Dosage: 20 MILLIGRAM
     Route: 048
     Dates: start: 20150907, end: 20150918
  7. POLYETHYLENE GLYCOL [Concomitant]
     Active Substance: POLYETHYLENE GLYCOLS
     Indication: CONSTIPATION
     Route: 048
     Dates: start: 20150817
  8. SLOW K [Concomitant]
     Active Substance: POTASSIUM CHLORIDE
     Indication: HYPOKALAEMIA
     Dosage: 32 MILLIEQUIVALENTS
     Route: 048
     Dates: start: 20150901, end: 20150908
  9. TYLENOL [Concomitant]
     Active Substance: ACETAMINOPHEN
     Indication: TRANSFUSION REACTION
     Route: 048
     Dates: start: 20150828
  10. TYLENOL [Concomitant]
     Active Substance: ACETAMINOPHEN
     Indication: PROPHYLAXIS
  11. AMOXICILLIN. [Concomitant]
     Active Substance: AMOXICILLIN
     Indication: BACTERAEMIA
     Dosage: 1500 MILLIGRAM
     Route: 048
     Dates: start: 20150903, end: 20150910
  12. HYDROMORPH CONTIN [Concomitant]
     Active Substance: HYDROMORPHONE
     Dosage: 24 MILLIGRAM
     Route: 048
  13. ZOMETA [Concomitant]
     Active Substance: ZOLEDRONIC ACID
     Indication: PRODUCT USED FOR UNKNOWN INDICATION
     Dosage: 3 MILLIGRAM
     Route: 041
  14. FUROSEMIDE. [Concomitant]
     Active Substance: FUROSEMIDE
     Indication: PRODUCT USED FOR UNKNOWN INDICATION
     Dosage: 20 MILLIGRAM
     Route: 048
  15. POTASSIUM CHLORIDE. [Concomitant]
     Active Substance: POTASSIUM CHLORIDE
     Indication: HYPOKALAEMIA
     Dosage: 2400 MILLIGRAM
     Route: 048
     Dates: start: 20150824, end: 20150825
  16. NYSTATIN. [Concomitant]
     Active Substance: NYSTATIN
     Indication: ORAL CANDIDIASIS
     Dosage: 1000000 IU (INTERNATIONAL UNIT)
     Route: 048
     Dates: start: 20120825, end: 20150826
  17. MAXERAN [Concomitant]
     Active Substance: METOCLOPRAMIDE HYDROCHLORIDE
     Indication: NAUSEA
     Route: 048
     Dates: start: 20150825
  18. ACYCLOVIR. [Concomitant]
     Active Substance: ACYCLOVIR
     Indication: ULCER
     Dosage: 400 MILLIGRAM
     Route: 048
     Dates: start: 20150827, end: 20150902
  19. PANTOPRAZOLE [Concomitant]
     Active Substance: PANTOPRAZOLE
     Indication: GASTROOESOPHAGEAL REFLUX DISEASE
     Dosage: 40 MILLIGRAM
     Route: 048
     Dates: start: 20150829, end: 20150901
  20. BUSULFAN. [Suspect]
     Active Substance: BUSULFAN
     Indication: PLASMA CELL MYELOMA
     Dosage: 177.92 MILLIGRAM
     Route: 041
     Dates: start: 20141114, end: 20141116
  21. NORMAL SALINE [Concomitant]
     Active Substance: SODIUM CHLORIDE
     Indication: DEHYDRATION
     Route: 040
     Dates: start: 20150819, end: 20150819
  22. PIPERACILLIN AND TAZOBACTAM [Concomitant]
     Active Substance: PIPERACILLIN SODIUM\TAZOBACTAM SODIUM
     Indication: BACTERAEMIA
     Dosage: 13.5 GRAM
     Route: 041
     Dates: start: 20150827, end: 20150903
  23. MELPHALAN. [Suspect]
     Active Substance: MELPHALAN
     Indication: PLASMA CELL MYELOMA
     Dosage: 226.8 MILLIGRAM
     Route: 041
     Dates: start: 20141117, end: 20141117
  24. GRAVOL [Concomitant]
     Active Substance: DIMENHYDRINATE
     Indication: NAUSEA
     Route: 048
     Dates: start: 20150826, end: 20150831
  25. KCL [Concomitant]
     Active Substance: POTASSIUM CHLORIDE
     Indication: HYPOKALAEMIA
     Dosage: 2400 MILLILITER
     Route: 041
     Dates: start: 20150824, end: 20150826
  26. MAGNESIUM OXIDE. [Concomitant]
     Active Substance: MAGNESIUM OXIDE
     Indication: HYPOMAGNESAEMIA
     Dosage: 840 MILLIGRAM
     Route: 048
     Dates: start: 20150829, end: 20150911
  27. MICAFUNGIN [Concomitant]
     Active Substance: MICAFUNGIN
     Indication: ORAL CANDIDIASIS
     Dosage: 150 MILLIGRAM
     Route: 041
     Dates: start: 20150829, end: 20150831
  28. MICAFUNGIN [Concomitant]
     Active Substance: MICAFUNGIN
     Dosage: 100 MILLIGRAM
     Route: 041
     Dates: start: 20150901, end: 20150904
  29. CALCIUM CARBONATE. [Concomitant]
     Active Substance: CALCIUM CARBONATE
     Dosage: 3000 MILLIGRAM
     Route: 048
     Dates: start: 20150902, end: 20150908
  30. SODIUM BICARBONATE. [Concomitant]
     Active Substance: SODIUM BICARBONATE
     Indication: BLOOD BICARBONATE DECREASED
     Dosage: 2 AMPS
     Route: 041
     Dates: start: 20150827, end: 20150828
  31. REVLIMID [Suspect]
     Active Substance: LENALIDOMIDE
     Indication: PLASMA CELL MYELOMA
     Dosage: 15 MILLIGRAM
     Route: 048
     Dates: start: 20150406, end: 20150819
  32. PHOSPHATE NOVARTIS [Concomitant]
     Indication: HYPOPHOSPHATAEMIA
     Dosage: 1000 MILLIGRAM
     Route: 048
     Dates: start: 20150828, end: 20150909
  33. HYDROMORPH CONTIN [Concomitant]
     Active Substance: HYDROMORPHONE
     Indication: PAIN
     Dosage: 12 MILLIGRAM
     Route: 048
     Dates: start: 20150826
  34. NORMAL SALINE [Concomitant]
     Active Substance: SODIUM CHLORIDE
     Indication: HYPOTENSION
     Dosage: 3600 MILLILITER
     Route: 041
     Dates: start: 20150826, end: 20150827
  35. KCL [Concomitant]
     Active Substance: POTASSIUM CHLORIDE
     Dosage: 720 MILLIEQUIVALENTS
     Route: 041
     Dates: start: 20150901, end: 20150903
  36. BENADRYL [Concomitant]
     Active Substance: DIPHENHYDRAMINE HYDROCHLORIDE
     Indication: TRANSFUSION REACTION
     Route: 048
     Dates: start: 20150828
  37. MAALOX ANTACID [Concomitant]
     Active Substance: ALUMINUM HYDROXIDE\DIMETHICONE\MAGNESIUM HYDROXIDE
     Indication: GASTROOESOPHAGEAL REFLUX DISEASE
     Route: 048
     Dates: start: 20150829, end: 20150829
  38. LASIX [Concomitant]
     Active Substance: FUROSEMIDE
     Indication: PROPHYLAXIS
     Dosage: 40 MILLIGRAM
     Route: 048
     Dates: start: 20150902, end: 20150918
  39. NORMAL SALINE [Concomitant]
     Active Substance: SODIUM CHLORIDE
     Indication: SUPPLEMENTATION THERAPY
     Dosage: 2400 MILLILITER
     Route: 040
     Dates: start: 20150824, end: 20150826
  40. KCL [Concomitant]
     Active Substance: POTASSIUM CHLORIDE
     Indication: SUPPLEMENTATION THERAPY
     Dosage: 3600 MILLILITER
     Route: 041
     Dates: start: 20150826, end: 20150828
  41. CALCIUM CARBONATE. [Concomitant]
     Active Substance: CALCIUM CARBONATE
     Indication: HYPOCALCAEMIA
     Dosage: 2000 MILLIGRAM
     Route: 048
     Dates: start: 20150827, end: 20150827
  42. BENADRYL [Concomitant]
     Active Substance: DIPHENHYDRAMINE HYDROCHLORIDE
     Indication: CHILLS
  43. MAGNESIUM SULFATE. [Concomitant]
     Active Substance: MAGNESIUM SULFATE
     Indication: HYPOMAGNESAEMIA
     Route: 041
     Dates: start: 20150830, end: 20150830
  44. LASIX [Concomitant]
     Active Substance: FUROSEMIDE
     Route: 048
     Dates: start: 20150909

REACTIONS (3)
  - Pancytopenia [Recovered/Resolved]
  - Cholestasis [Recovered/Resolved]
  - Acute kidney injury [Recovered/Resolved]

NARRATIVE: CASE EVENT DATE: 20150824
